FAERS Safety Report 24784479 (Version 1)
Quarter: 2024Q4

REPORT INFORMATION
  Report Type: Spontaneous
  Country: US (occurrence: US)
  Receive Date: 20241227
  Receipt Date: 20241227
  Transmission Date: 20250114
  Serious: Yes (Other)
  Sender: MERCK
  Company Number: US-009507513-2412USA008630

PATIENT
  Sex: Male

DRUGS (8)
  1. SIVEXTRO [Suspect]
     Active Substance: TEDIZOLID PHOSPHATE
     Indication: Mycobacterium abscessus infection
     Route: 048
  2. AZITHROMYCIN [Concomitant]
     Active Substance: AZITHROMYCIN
     Indication: Mycobacterium abscessus infection
  3. ERAVACYCLINE [Concomitant]
     Active Substance: ERAVACYCLINE
     Indication: Mycobacterium abscessus infection
  4. LINEZOLID [Concomitant]
     Active Substance: LINEZOLID
     Indication: Mycobacterium abscessus infection
  5. AMIKACIN [Concomitant]
     Active Substance: AMIKACIN
     Indication: Mycobacterium abscessus infection
  6. UNSPECIFIED INGREDIENT [Concomitant]
     Active Substance: UNSPECIFIED INGREDIENT
     Indication: Mycobacterium abscessus infection
  7. MEROPENEM [Concomitant]
     Active Substance: MEROPENEM
     Indication: Mycobacterium abscessus infection
  8. AVIBACTAM SODIUM\CEFTAZIDIME [Concomitant]
     Active Substance: AVIBACTAM SODIUM\CEFTAZIDIME
     Indication: Mycobacterium abscessus infection

REACTIONS (2)
  - Neuropathy peripheral [Unknown]
  - Product use in unapproved indication [Unknown]
